FAERS Safety Report 4711198-X (Version None)
Quarter: 2005Q3

REPORT INFORMATION
  Report Type: 
  Country: None (occurrence: None)
  Receive Date: 20050708
  Receipt Date: 20050628
  Transmission Date: 20060218
  Serious: Yes (Other)
  Sender: FDA-Public Use
  Company Number: DE-2005-011901

PATIENT
  Age: 48 Year
  Sex: Female

DRUGS (1)
  1. MIRENA [Suspect]
     Dosage: 20 MICROGRAM/DAY, CONT, INTRA-UTERINE
     Route: 015
     Dates: start: 20031111

REACTIONS (2)
  - CERVIX CARCINOMA STAGE 0 [None]
  - SMEAR CERVIX ABNORMAL [None]
